FAERS Safety Report 6798040-0 (Version None)
Quarter: 2010Q2

REPORT INFORMATION
  Report Type: 
  Country: None (occurrence: None)
  Receive Date: 20100623
  Receipt Date: 20100616
  Transmission Date: 20101027
  Serious: Yes (Death)
  Sender: FDA-Public Use
  Company Number: 617718

PATIENT
  Age: 53 Year
  Sex: Female

DRUGS (2)
  1. METHOTREXATE [Suspect]
     Indication: IMMUNOSUPPRESSANT DRUG THERAPY
  2. PREDNISONE [Suspect]
     Indication: CROHN'S DISEASE
     Dosage: UNKNOWN, 1 DAY, UNKNOWN

REACTIONS (8)
  - CEREBRAL ASPERGILLOSIS [None]
  - COMA [None]
  - HYPOTENSION [None]
  - LUNG CONSOLIDATION [None]
  - PNEUMONIA [None]
  - SEPTIC EMBOLUS [None]
  - TACHYCARDIA [None]
  - THROMBOCYTOPENIA [None]
